FAERS Safety Report 11460710 (Version 1)
Quarter: 2015Q3

REPORT INFORMATION
  Report Type: Report from Study
  Country: US (occurrence: US)
  Receive Date: 20150904
  Receipt Date: 20150904
  Transmission Date: 20151125
  Serious: Yes (Other)
  Sender: FDA-Public Use
  Company Number: US-BAXALTA-2015BLT001495

PATIENT
  Sex: Female

DRUGS (1)
  1. GAMMAGARD LIQUID [Suspect]
     Active Substance: HUMAN IMMUNOGLOBULIN G
     Indication: IMMUNODEFICIENCY COMMON VARIABLE
     Dosage: 8 G, 1X A WEEK
     Route: 058

REACTIONS (7)
  - Diarrhoea [Unknown]
  - Haemoglobin decreased [Unknown]
  - Weight decreased [Unknown]
  - Hypoaesthesia [Unknown]
  - Giardiasis [Unknown]
  - Nasopharyngitis [Unknown]
  - Fatigue [Unknown]
